FAERS Safety Report 9599048 (Version 1)
Quarter: 2013Q4

REPORT INFORMATION
  Report Type: Spontaneous
  Country: US (occurrence: US)
  Receive Date: 20131004
  Receipt Date: 20131004
  Transmission Date: 20140711
  Serious: No
  Sender: FDA-Public Use
  Company Number: US-AMGEN-USASP2013027322

PATIENT
  Age: 41 Year
  Sex: Female

DRUGS (1)
  1. ENBREL [Suspect]
     Indication: RHEUMATOID ARTHRITIS
     Dosage: UNKNOWN MG EVERY OTHER WEEK
     Dates: start: 20130101, end: 201302

REACTIONS (3)
  - Oedema peripheral [Not Recovered/Not Resolved]
  - Rash erythematous [Recovered/Resolved]
  - Feeling hot [Recovered/Resolved]
